FAERS Safety Report 16756034 (Version 1)
Quarter: 2019Q3

REPORT INFORMATION
  Report Type: Spontaneous
  Country: US (occurrence: US)
  Receive Date: 20190829
  Receipt Date: 20190829
  Transmission Date: 20191005
  Serious: No
  Sender: FDA-Public Use
  Company Number: US-BAYER-2019-152908

PATIENT
  Age: 83 Year
  Sex: Female
  Weight: 58 kg

DRUGS (3)
  1. CITRACAL PETITES [Suspect]
     Active Substance: CALCIUM CITRATE
     Indication: NUTRITIONAL SUPPLEMENTATION
     Dosage: 2 DF, QD
     Route: 048
     Dates: start: 2018
  2. ONE A DAY ESSENTIAL [Suspect]
     Active Substance: VITAMINS
  3. CLARITIN [Suspect]
     Active Substance: LORATADINE

REACTIONS (3)
  - Product packaging issue [Unknown]
  - Incorrect dosage administered [Unknown]
  - Product prescribing issue [Unknown]

NARRATIVE: CASE EVENT DATE: 2018
